FAERS Safety Report 7814398-5 (Version None)
Quarter: 2011Q4

REPORT INFORMATION
  Report Type: 
  Country: None (occurrence: None)
  Receive Date: 20111014
  Receipt Date: 20111001
  Transmission Date: 20120403
  Serious: Yes (Other)
  Sender: FDA-Public Use
  Company Number: PHHY2011MX87503

PATIENT
  Sex: Female

DRUGS (1)
  1. DIOVAN HCT [Suspect]
     Indication: HYPERTENSION
     Dosage: 1 DF, (VALSARTAN 160 MG/HYDROCHLOROTHIAZIDE 25 MG), DAILY
     Dates: start: 20090101

REACTIONS (2)
  - ACCIDENT [None]
  - HIP FRACTURE [None]
